FAERS Safety Report 24110356 (Version 1)
Quarter: 2024Q3

REPORT INFORMATION
  Report Type: Report from Study
  Country: US (occurrence: None)
  Receive Date: 20240718
  Receipt Date: 20240718
  Transmission Date: 20241017
  Serious: Yes (Other)
  Sender: ASTRAZENECA
  Company Number: 2020SE47832

PATIENT
  Age: 75 Year
  Sex: Male

DRUGS (8)
  1. CALQUENCE [Suspect]
     Active Substance: ACALABRUTINIB
     Indication: Chronic lymphocytic leukaemia
     Route: 048
     Dates: start: 20200117
  2. VITAMINS [Concomitant]
     Active Substance: VITAMINS
  3. FINASTERIDE [Concomitant]
     Active Substance: FINASTERIDE
  4. FISH OIL [Concomitant]
     Active Substance: FISH OIL
  5. DULCOLAX [Concomitant]
  6. LUTEIN [Concomitant]
     Active Substance: LUTEIN
  7. LEVOTHYROXINE [Concomitant]
     Active Substance: LEVOTHYROXINE\LEVOTHYROXINE SODIUM
  8. RAPAFLO [Concomitant]
     Active Substance: SILODOSIN

REACTIONS (1)
  - Pleural effusion [Unknown]
